FAERS Safety Report 8193537-3 (Version None)
Quarter: 2012Q1

REPORT INFORMATION
  Report Type: 
  Country: None (occurrence: None)
  Receive Date: 20120308
  Receipt Date: 20120224
  Transmission Date: 20120608
  Serious: Yes (Other)
  Sender: FDA-Public Use
  Company Number: JP-ROCHE-1044502

PATIENT
  Age: 60 Year
  Sex: Female

DRUGS (7)
  1. GASMOTIN [Concomitant]
     Dosage: DOSAGE IS UNCERTAIN.
     Route: 048
  2. OLOPATADINE HCL [Concomitant]
     Dosage: DOSAGE IS UNCERTAIN.
     Route: 048
  3. TAMIFLU [Suspect]
     Indication: INFLUENZA
     Route: 048
     Dates: start: 20120222, end: 20120222
  4. RENAGEL [Concomitant]
     Dosage: DOSAGE IS UNCERTAIN.
     Route: 048
  5. LASIX [Concomitant]
     Dosage: DOSAGE IS UNCERTAIN.
     Route: 065
  6. OMEPRAZOLE [Concomitant]
     Dosage: DOSAGE IS UNCERTAIN.
     Route: 048
  7. CRESTOR [Concomitant]
     Dosage: DOSAGE IS UNCERTAIN.
     Route: 048

REACTIONS (1)
  - CONVULSION [None]
